FAERS Safety Report 8697468 (Version 3)
Quarter: 2012Q4

REPORT INFORMATION
  Report Type: 
  Country: US (occurrence: US)
  Receive Date: 20120801
  Receipt Date: 20121016
  Transmission Date: 20130627
  Serious: Yes (Hospitalization)
  Sender: FDA-Public Use
  Company Number: US-BAYER-2012-044785

PATIENT
  Age: 72 Year
  Sex: Male
  Weight: 74.9 kg

DRUGS (25)
  1. NEXAVAR [Suspect]
     Indication: HEPATIC NEOPLASM MALIGNANT
     Dosage: 200 mg, BID
     Route: 048
     Dates: start: 20120420, end: 20120424
  2. NEXAVAR [Suspect]
     Indication: HEPATIC NEOPLASM MALIGNANT
     Dosage: 200 mg, BID
     Route: 048
     Dates: end: 20120523
  3. NEXAVAR [Suspect]
     Indication: HEPATIC NEOPLASM MALIGNANT
     Dosage: 200 mg, BID
     Route: 048
     Dates: start: 20120525, end: 20120628
  4. LANTUS [Concomitant]
     Dosage: 30 u, BID at bedtime
     Route: 058
  5. METOPROLOL [Concomitant]
     Dosage: 50 mg, 2 tablet every morning
     Route: 048
  6. TRAMADOL [Concomitant]
     Dosage: 50 mg, QID p.r.n.
  7. PREDNISONE [Concomitant]
     Dosage: 20 mg, QD
     Route: 048
  8. NITROGLYCERIN [Concomitant]
     Dosage: 0.4 mg, q. 5 minutes
     Route: 060
  9. DILAUDID [Concomitant]
     Dosage: 2 mg, 1 to 2 tablets BID, r.p.n.
     Route: 048
  10. RANITIDINE [Concomitant]
     Dosage: 150 mg, QD
     Route: 048
  11. AMLODIPINE [Concomitant]
     Dosage: 5 mg, QD
     Route: 048
  12. AMLODIPINE [Concomitant]
     Dosage: 10 mg, QD
     Route: 048
  13. CRESTOR [Concomitant]
     Dosage: 20 mg, QD at bedtime
     Route: 048
  14. TYLENOL [Concomitant]
     Dosage: 500 mg, TID
     Route: 048
  15. ARTIFICIAL TEARS [ARTIFICIAL TEARS] [Concomitant]
     Dosage: 1 drip one each p.r.n.
  16. ACETYLSALICYLIC ACID({=100 MG) [Concomitant]
     Dosage: 81 mg, every morning
     Route: 048
  17. CENTRUM [Concomitant]
     Dosage: 1 DF, daily
     Route: 048
  18. NOVOLOG [Concomitant]
     Dosage: 8 u, with each meal
  19. ANTINEOPLASTIC AGENTS [Concomitant]
     Indication: HEPATIC CANCER METASTATIC
     Dosage: UNK
     Dates: start: 201204
  20. WARFARIN [Concomitant]
     Dosage: UNK
     Dates: end: 201204
  21. LOVENOX [Concomitant]
     Dosage: 1 mg/kg, BID
     Route: 048
  22. I.V. SOLUTIONS [Concomitant]
     Indication: BLOOD CREATININE INCREASED
     Route: 042
  23. BLOOD PRESSURE MEDICATION (NOS) [Concomitant]
     Indication: HYPERTENSION
     Dosage: UNK
     Dates: start: 201204
  24. INSULIN [Concomitant]
     Indication: BLOOD GLUCOSE FLUCTUATION
     Dosage: UNK
     Dates: start: 201204
  25. METOPROLOL SUCCINATE [Concomitant]
     Dosage: 100 mg, reportedly: q daily
     Route: 048

REACTIONS (9)
  - Renal failure acute [None]
  - Renal impairment [None]
  - Blood creatinine increased [None]
  - Musculoskeletal pain [None]
  - Renal failure [Not Recovered/Not Resolved]
  - Gout [Recovering/Resolving]
  - Heart rate irregular [Recovering/Resolving]
  - Pericarditis [Not Recovered/Not Resolved]
  - Blood pressure increased [Recovering/Resolving]
